FAERS Safety Report 10241105 (Version 1)
Quarter: 2014Q1

REPORT INFORMATION
  Report Type: Spontaneous
  Country: US (occurrence: None)
  Receive Date: 20140306
  Receipt Date: 20140306
  Transmission Date: 20141002
  Serious: Yes (Other)
  Sender: FDA-Public Use
  Company Number: 163-21880-13050883

PATIENT
  Age: 69 Year
  Sex: Male
  Weight: 69.4 kg

DRUGS (8)
  1. REVLIMID (LENALIDOMIDE) (25 MILLIGRAM, CAPSULES) [Suspect]
     Indication: LYMPHOMA
     Route: 048
     Dates: start: 20120927, end: 20121118
  2. MUCINEX DM (TUSSIN DM) (LIQUID) [Concomitant]
  3. STOOL SOFTENER (DOCUSATE SODIUM) (CAPSULES) [Concomitant]
  4. MIRALAX (MACROGOL) (POWDER) [Concomitant]
  5. LOVENOX (HEPARIN-FRACTION, SODIUM SALT) (INJECTION) [Concomitant]
  6. ALBUTEROL (SALBUTAMOL) (AEROSOL FOR INHALATION) [Concomitant]
  7. COMBIVENT (COMBIVENT) (AEROSOL FOR INHALATION) [Concomitant]
  8. PROCHLORPERAZINE MALEATE (PROCHLORPERAZINE MALEATE) (UNKNOWN) [Concomitant]

REACTIONS (3)
  - Pancytopenia [None]
  - Fatigue [None]
  - Nausea [None]
